FAERS Safety Report 23186787 (Version 1)
Quarter: 2023Q4

REPORT INFORMATION
  Report Type: Spontaneous
  Country: US (occurrence: None)
  Receive Date: 20231115
  Receipt Date: 20231115
  Transmission Date: 20240110
  Serious: No
  Sender: FDA-Public Use
  Company Number: None

PATIENT
  Age: 71 Year
  Sex: Female
  Weight: 90 kg

DRUGS (3)
  1. ASPERCREME WITH LIDOCAINE FOOT PAIN CREME [Suspect]
     Active Substance: LIDOCAINE HYDROCHLORIDE
     Indication: Exostosis
     Dosage: FREQUENCY : 3 TIMES A DAY;?
     Route: 061
     Dates: start: 20231025, end: 20231114
  2. GOLD BOND ORIGINAL STRENGTH POWDER [Concomitant]
     Active Substance: MENTHOL\ZINC OXIDE
  3. Cortizone brand cortisone cream [Concomitant]

REACTIONS (3)
  - Arthropod bite [None]
  - Pruritus [None]
  - Rash [None]

NARRATIVE: CASE EVENT DATE: 20231026
